FAERS Safety Report 24648281 (Version 2)
Quarter: 2025Q3

REPORT INFORMATION
  Report Type: Report from Study
  Country: US (occurrence: US)
  Receive Date: 20241121
  Receipt Date: 20250803
  Transmission Date: 20251021
  Serious: Yes (Hospitalization)
  Sender: ALEXION PHARMACEUTICALS
  Company Number: US-AstraZeneca-2022A130497

PATIENT
  Sex: Female

DRUGS (1)
  1. TAGRISSO [Suspect]
     Active Substance: OSIMERTINIB
     Indication: Neoplasm malignant
     Dosage: 40 MILLIGRAM, BID

REACTIONS (6)
  - Infection [Unknown]
  - Pruritus [Unknown]
  - Cancer pain [Unknown]
  - Gait disturbance [Unknown]
  - Product dose omission issue [Unknown]
  - Palmar-plantar erythrodysaesthesia syndrome [Unknown]
